FAERS Safety Report 9289255 (Version 6)
Quarter: 2015Q1

REPORT INFORMATION
  Report Type: Spontaneous
  Country: US (occurrence: US)
  Receive Date: 20130514
  Receipt Date: 20150225
  Transmission Date: 20150721
  Serious: Yes (Hospitalization, Other)
  Sender: FDA-Public Use
  Company Number: US-009507513-1305USA005509

PATIENT
  Sex: Female

DRUGS (4)
  1. FOSAMAX [Suspect]
     Active Substance: ALENDRONATE SODIUM
     Indication: OSTEOPOROSIS
     Dosage: 70 MG, QW
     Route: 048
     Dates: start: 199811, end: 200410
  2. FOSAMAX [Suspect]
     Active Substance: ALENDRONATE SODIUM
     Indication: OSTEOPENIA
     Dosage: 70 MG, QW
     Route: 048
     Dates: start: 20120904
  3. FOSAMAX [Suspect]
     Active Substance: ALENDRONATE SODIUM
     Indication: OSTEOPENIA
     Dosage: 70 MG, QW
     Route: 048
     Dates: start: 200605, end: 20121201
  4. FOSAMAX [Suspect]
     Active Substance: ALENDRONATE SODIUM
     Indication: OSTEOPOROSIS
     Dosage: 70 MG, QW
     Route: 048
     Dates: start: 20021101

REACTIONS (21)
  - Femur fracture [Unknown]
  - Surgery [Unknown]
  - Abdominoplasty [Unknown]
  - Hypothyroidism [Unknown]
  - Gingival bleeding [Unknown]
  - Drug hypersensitivity [Unknown]
  - Hyperchlorhydria [Unknown]
  - Breast prosthesis implantation [Unknown]
  - Wrist fracture [Unknown]
  - Osteoarthritis [Unknown]
  - Hyperlipidaemia [Unknown]
  - Depression [Unknown]
  - Liposuction [Unknown]
  - Bone disorder [Unknown]
  - Low turnover osteopathy [Unknown]
  - Plastic surgery to the face [Unknown]
  - Intramedullary rod insertion [Unknown]
  - Mammoplasty [Unknown]
  - Oophorectomy [Unknown]
  - Fall [Unknown]
  - Hot flush [Unknown]

NARRATIVE: CASE EVENT DATE: 199901
